APPROVED DRUG PRODUCT: LONOX
Active Ingredient: ATROPINE SULFATE; DIPHENOXYLATE HYDROCHLORIDE
Strength: 0.025MG;2.5MG
Dosage Form/Route: TABLET;ORAL
Application: A085311 | Product #002
Applicant: FOSUN PHARMA USA INC
Approved: Approved Prior to Jan 1, 1982 | RLD: No | RS: No | Type: DISCN